FAERS Safety Report 6004441-0 (Version None)
Quarter: 2008Q4

REPORT INFORMATION
  Report Type: 
  Country: None (occurrence: None)
  Receive Date: 20081216
  Receipt Date: 20081205
  Transmission Date: 20090506
  Serious: Yes (Other)
  Sender: FDA-Public Use
  Company Number: JP-MERCK-0811USA02454

PATIENT
  Age: 89 Year
  Sex: Female

DRUGS (3)
  1. ZETIA [Suspect]
     Indication: HYPERLIPIDAEMIA
     Route: 048
     Dates: start: 20080707, end: 20081011
  2. FLUNITRAZEPAM [Concomitant]
     Route: 065
     Dates: start: 20030710, end: 20081011
  3. [THERAPY UNSPECIFIED] [Concomitant]
     Route: 065
     Dates: start: 20070805, end: 20081011

REACTIONS (1)
  - HEPATIC FUNCTION ABNORMAL [None]
